FAERS Safety Report 23499199 (Version 1)
Quarter: 2024Q1

REPORT INFORMATION
  Report Type: Spontaneous
  Country: US (occurrence: None)
  Receive Date: 20240208
  Receipt Date: 20240208
  Transmission Date: 20240410
  Serious: Yes (Hospitalization)
  Sender: FDA-Public Use
  Company Number: None

PATIENT
  Sex: Male

DRUGS (7)
  1. NUCALA [Suspect]
     Active Substance: MEPOLIZUMAB
     Indication: Asthma
     Dosage: FREQUENCY : MONTHLY;?
     Route: 058
  2. LORATADINE TAB 10MG [Concomitant]
  3. PREDNISONE [Concomitant]
     Active Substance: PREDNISONE
  4. PREDNISONE [Concomitant]
     Active Substance: PREDNISONE
  5. LORATADINE [Concomitant]
  6. PREDNISONE TAB 10MG [Concomitant]
  7. PREDNISONE TAB 5MG [Concomitant]

REACTIONS (2)
  - Pneumonia [None]
  - Quality of life decreased [None]
